FAERS Safety Report 9476744 (Version 1)
Quarter: 2013Q3

REPORT INFORMATION
  Report Type: Spontaneous
  Country: US (occurrence: US)
  Receive Date: 20130826
  Receipt Date: 20130826
  Transmission Date: 20140515
  Serious: Yes (Other)
  Sender: FDA-Public Use
  Company Number: US-BRISTOL-MYERS SQUIBB COMPANY-18711887

PATIENT
  Age: 48 Year
  Sex: Male

DRUGS (2)
  1. KENALOG-40 [Suspect]
     Indication: INTERVERTEBRAL DISC SPACE NARROWING
     Route: 008
     Dates: start: 201205
  2. KENALOG-40 [Suspect]
     Indication: INTERVERTEBRAL DISC PROTRUSION
     Route: 008
     Dates: start: 201205

REACTIONS (3)
  - Mania [Not Recovered/Not Resolved]
  - Acne [Unknown]
  - Off label use [Unknown]
